FAERS Safety Report 17110835 (Version 1)
Quarter: 2019Q4

REPORT INFORMATION
  Report Type: Spontaneous
  Country: US (occurrence: US)
  Receive Date: 20191109
  Receipt Date: 20191109
  Transmission Date: 20200122
  Serious: No
  Sender: FDA-Public Use
  Company Number: None

PATIENT
  Age: 71 Year
  Sex: Male

DRUGS (1)
  1. SOFOSBUVIR / VELPATASVIR 400-100MG [Suspect]
     Active Substance: SOFOSBUVIR\VELPATASVIR
     Route: 048
     Dates: start: 20191024, end: 20191109

REACTIONS (5)
  - Nausea [None]
  - Headache [None]
  - Insomnia [None]
  - Vomiting [None]
  - Anxiety [None]

NARRATIVE: CASE EVENT DATE: 20191109
